FAERS Safety Report 6525652-1 (Version None)
Quarter: 2010Q1

REPORT INFORMATION
  Report Type: 
  Country: None (occurrence: None)
  Receive Date: 20100104
  Receipt Date: 20091223
  Transmission Date: 20100710
  Serious: Yes (Disabling)
  Sender: FDA-Public Use
  Company Number: DK-ELI_LILLY_AND_COMPANY-DK200912005721

PATIENT
  Sex: Female
  Weight: 69 kg

DRUGS (1)
  1. ZYPREXA [Suspect]
     Indication: PSYCHOTIC DISORDER
     Dosage: 10-15 MG, UNKNOWN
     Route: 048
     Dates: start: 19980401, end: 19990501

REACTIONS (10)
  - ALOPECIA [None]
  - ANAEMIA [None]
  - FATIGUE [None]
  - INFECTION [None]
  - JESSNER'S LYMPHOCYTIC INFILTRATION [None]
  - LEUKOCYTOSIS [None]
  - PULMONARY EMBOLISM [None]
  - RASH [None]
  - SYSTEMIC LUPUS ERYTHEMATOSUS [None]
  - THROMBOCYTOSIS [None]
